FAERS Safety Report 5765318-9 (Version None)
Quarter: 2008Q2

REPORT INFORMATION
  Report Type: 
  Country: None (occurrence: None)
  Receive Date: 20080602
  Receipt Date: 20080117
  Transmission Date: 20081010
  Serious: No
  Sender: FDA-Public Use
  Company Number: PHEH2008US01003

PATIENT
  Sex: Female

DRUGS (3)
  1. TEKTURNA [Suspect]
  2. BENICAR [Concomitant]
  3. NORVASC [Concomitant]

REACTIONS (1)
  - WEIGHT DECREASED [None]
